FAERS Safety Report 6779514-5 (Version None)
Quarter: 2010Q2

REPORT INFORMATION
  Report Type: 
  Country: None (occurrence: None)
  Receive Date: 20100618
  Receipt Date: 20100607
  Transmission Date: 20101027
  Serious: Yes (Hospitalization, Other)
  Sender: FDA-Public Use
  Company Number: US-ELI_LILLY_AND_COMPANY-US201004003710

PATIENT
  Sex: Male

DRUGS (21)
  1. BYETTA [Suspect]
     Indication: TYPE 2 DIABETES MELLITUS
     Dosage: 10 UG, 2/D
  2. ACTOS /SCH/ [Concomitant]
     Dosage: 30 MG, DAILY (1/D)
     Route: 048
  3. ACTOS /SCH/ [Concomitant]
     Dosage: 30 MG, DAILY (1/D)
     Route: 048
     Dates: start: 20090420
  4. ADVIL LIQUI-GELS [Concomitant]
     Dosage: UNK, 2/D
  5. ASPIRIN [Concomitant]
     Dosage: 325 MG, DAILY (1/D)
     Route: 048
  6. ASTELIN [Concomitant]
     Dosage: 137 UG, AS NEEDED
     Route: 045
  7. ETODOLAC [Concomitant]
     Dosage: 500 MG, 2/D
     Route: 048
  8. ETODOLAC [Concomitant]
     Dosage: UNK, AS NEEDED
  9. FLOVENT [Concomitant]
     Dosage: UNK, AS NEEDED
  10. VITAMIN TAB [Concomitant]
     Dosage: UNK, DAILY (1/D)
  11. POTASSIUM GLUCONATE TAB [Concomitant]
     Dosage: 2 D/F, DAILY (1/D)
  12. PRILOSEC [Concomitant]
     Dosage: UNK, DAILY (1/D)
  13. SINGULAIR [Concomitant]
     Dosage: 10 MG, DAILY (1/D)
     Route: 048
  14. TUSSIONEX [Concomitant]
     Dosage: 5 ML, AS NEEDED
     Route: 048
     Dates: start: 20100401
  15. VENTOLIN HFA [Concomitant]
     Dosage: UNK, AS NEEDED
     Route: 055
  16. ZYRTEC [Concomitant]
     Dosage: 10 MG, DAILY (1/D)
  17. PREVACID [Concomitant]
     Dosage: 50 MG, DAILY (1/D)
  18. HYDROCODONE BITARTRATE AND ACETAMINOPHEN [Concomitant]
     Dosage: 10 MG, AS NEEDED
  19. ALBUTEROL [Concomitant]
     Dosage: UNK, AS NEEDED
  20. MULTI-VITAMIN [Concomitant]
     Dosage: 1 D/F, DAILY (1/D)
  21. BETAPACE [Concomitant]

REACTIONS (1)
  - PANCREATITIS [None]
